FAERS Safety Report 16766461 (Version 1)
Quarter: 2019Q3

REPORT INFORMATION
  Report Type: Spontaneous
  Country: US (occurrence: US)
  Receive Date: 20190713
  Receipt Date: 20190713
  Transmission Date: 20191005
  Serious: Yes (Hospitalization)
  Sender: FDA-Public Use
  Company Number: None

PATIENT
  Age: 55 Year
  Sex: Female
  Weight: 70.5 kg

DRUGS (3)
  1. 5-FLUOROURACIL (5-FU) (19893) [Suspect]
     Active Substance: FLUOROURACIL
     Dates: end: 20190625
  2. ELOXATIN [Suspect]
     Active Substance: OXALIPLATIN
     Dosage: ?          OTHER DOSE:114.4MG;?
     Dates: end: 20190625
  3. LEUCOVORIN. [Suspect]
     Active Substance: LEUCOVORIN
     Dates: end: 20190625

REACTIONS (5)
  - Mental status changes [None]
  - Emphysema [None]
  - Dizziness [None]
  - Diarrhoea [None]
  - Hypoxia [None]

NARRATIVE: CASE EVENT DATE: 20190629
